FAERS Safety Report 9410337 (Version 1)
Quarter: 2013Q3

REPORT INFORMATION
  Report Type: Spontaneous
  Country: US (occurrence: US)
  Receive Date: 20130719
  Receipt Date: 20130719
  Transmission Date: 20140515
  Serious: Yes (Hospitalization, Other)
  Sender: FDA-Public Use
  Company Number: US-CELGENEUS-163-21880-13053622

PATIENT
  Age: 70 Year
  Sex: Male

DRUGS (5)
  1. REVLIMID [Suspect]
     Indication: PLASMA CELL MYELOMA
     Dosage: 15 MILLIGRAM
     Route: 048
     Dates: start: 200812
  2. REVLIMID [Suspect]
     Dosage: 15 MG - 25 MG
     Route: 048
     Dates: start: 20090121
  3. REVLIMID [Suspect]
     Dosage: 15 MILLIGRAM
     Route: 048
     Dates: start: 20120917, end: 20130520
  4. VELCADE [Concomitant]
     Indication: PRODUCT USED FOR UNKNOWN INDICATION
     Route: 065
     Dates: end: 20130520
  5. DECADRON [Concomitant]
     Indication: PLASMA CELL MYELOMA
     Dosage: 8 MILLIGRAM
     Route: 065
     Dates: start: 20120917

REACTIONS (5)
  - Carotid artery stenosis [Unknown]
  - Non-small cell lung cancer [Unknown]
  - Transient ischaemic attack [Unknown]
  - Hypotension [Recovered/Resolved]
  - Hypertension [Unknown]
